FAERS Safety Report 6140298-5 (Version None)
Quarter: 2009Q2

REPORT INFORMATION
  Report Type: 
  Country: None (occurrence: None)
  Receive Date: 20090401
  Receipt Date: 20090325
  Transmission Date: 20091009
  Serious: Yes (Other)
  Sender: FDA-Public Use
  Company Number: PHHY2009ES11668

PATIENT
  Age: 4 Year
  Sex: Male

DRUGS (1)
  1. CYCLOSPORINE [Suspect]
     Indication: STEM CELL TRANSPLANT

REACTIONS (3)
  - BLOOD STEM CELL TRANSPLANT FAILURE [None]
  - HERPES ZOSTER [None]
  - PANCYTOPENIA [None]
